FAERS Safety Report 16586195 (Version 1)
Quarter: 2019Q3

REPORT INFORMATION
  Report Type: Spontaneous
  Country: US (occurrence: US)
  Receive Date: 20190717
  Receipt Date: 20190717
  Transmission Date: 20191004
  Serious: Yes (Death, Hospitalization, Other)
  Sender: FDA-Public Use
  Company Number: US-MYLANLABS-2019M1066425

PATIENT
  Age: 5 Decade

DRUGS (4)
  1. AMIKACIN. [Suspect]
     Active Substance: AMIKACIN
     Indication: SERRATIA INFECTION
     Route: 065
  2. CIPROFLOXACIN. [Suspect]
     Active Substance: CIPROFLOXACIN
     Indication: SERRATIA INFECTION
     Dosage: FOR 7 DAYS
     Route: 048
  3. PIPERACILLIN/TAZOBACTAM [Suspect]
     Active Substance: PIPERACILLIN SODIUM\TAZOBACTAM SODIUM
     Indication: SERRATIA INFECTION
     Dosage: 2.25G EVERY 6 HOURS FOR 15 DAYS
     Route: 042
  4. PIPERACILLIN/TAZOBACTAM [Suspect]
     Active Substance: PIPERACILLIN SODIUM\TAZOBACTAM SODIUM
     Indication: SERRATIA INFECTION
     Dosage: INITIAL DOSE UNKNOWN. LATER, THE PATIENT RECEIVED 2.25G EVERY 6H
     Route: 065

REACTIONS (5)
  - Vomiting [Unknown]
  - Drug resistance [Fatal]
  - Dyspnoea [Fatal]
  - Delirium [Unknown]
  - Hypotension [Fatal]
